FAERS Safety Report 6434367-X (Version None)
Quarter: 2009Q4

REPORT INFORMATION
  Report Type: 
  Country: None (occurrence: None)
  Receive Date: 20091110
  Receipt Date: 20090528
  Transmission Date: 20100525
  Serious: No
  Sender: FDA-Public Use
  Company Number: US-ASTRAZENECA-2009SE09865

PATIENT
  Sex: Female

DRUGS (4)
  1. PRILOSEC OTC [Suspect]
     Indication: GASTROOESOPHAGEAL REFLUX DISEASE
     Route: 048
     Dates: start: 20090528
  2. FOSAMAX [Concomitant]
  3. CLARITIN [Concomitant]
  4. ACIPHEX [Concomitant]

REACTIONS (4)
  - CONSTIPATION [None]
  - ERUCTATION [None]
  - GLOSSODYNIA [None]
  - THROAT IRRITATION [None]
